FAERS Safety Report 5736836-4 (Version None)
Quarter: 2008Q2

REPORT INFORMATION
  Report Type: 
  Country: None (occurrence: None)
  Receive Date: 20080508
  Receipt Date: 20080422
  Transmission Date: 20081010
  Serious: Yes (Death)
  Sender: FDA-Public Use
  Company Number: 8032162

PATIENT

DRUGS (7)
  1. PREDNISOLONE [Suspect]
     Indication: UVEITIS
     Dosage: 200 MG 1/D IV
     Route: 042
  2. PREDNISOLONE [Suspect]
     Indication: UVEITIS
     Dosage: 150 MG 1/D IV
     Route: 042
  3. PREDNISOLONE [Suspect]
     Indication: UVEITIS
     Dosage: 100 MG 1/D IV
     Route: 042
  4. PREDNISOLONE [Suspect]
     Indication: UVEITIS
     Dosage: 80 MG 1/D PO
     Route: 048
  5. PREDNISOLONE [Suspect]
     Indication: UVEITIS
     Dosage: PO
     Route: 048
  6. PREDNISOLONE [Suspect]
     Indication: UVEITIS
     Dosage: 55 MG 1/D PO
     Route: 048
  7. PREDNISOLONE [Suspect]
     Indication: UVEITIS
     Dosage: PO
     Route: 048

REACTIONS (2)
  - DRUG EXPOSURE DURING PREGNANCY [None]
  - INTRA-UTERINE DEATH [None]
